APPROVED DRUG PRODUCT: DILT-CD
Active Ingredient: DILTIAZEM HYDROCHLORIDE
Strength: 300MG
Dosage Form/Route: CAPSULE, EXTENDED RELEASE;ORAL
Application: A076151 | Product #004
Applicant: APOTEX INC
Approved: May 20, 2004 | RLD: No | RS: No | Type: DISCN